FAERS Safety Report 8105221-2 (Version None)
Quarter: 2012Q1

REPORT INFORMATION
  Report Type: 
  Country: None (occurrence: None)
  Receive Date: 20120201
  Receipt Date: 20120124
  Transmission Date: 20120608
  Serious: Yes (Hospitalization, Other)
  Sender: FDA-Public Use
  Company Number: US-PURDUE-USA-2010-0053600

PATIENT
  Sex: Female

DRUGS (1)
  1. OXYCONTIN [Suspect]
     Indication: PAIN
     Dosage: 40 MG, TID
     Route: 048

REACTIONS (4)
  - COLON CANCER [None]
  - DRUG EFFECT DECREASED [None]
  - NASOPHARYNGITIS [None]
  - MALAISE [None]
